FAERS Safety Report 9847048 (Version 1)
Quarter: 2014Q1

REPORT INFORMATION
  Report Type: Spontaneous
  Country: FR (occurrence: FR)
  Receive Date: 20140127
  Receipt Date: 20140127
  Transmission Date: 20141002
  Serious: Yes (Hospitalization, Other)
  Sender: FDA-Public Use
  Company Number: FR-PFIZER INC-2014022947

PATIENT
  Age: 86 Year
  Sex: Female

DRUGS (10)
  1. EUPANTOL [Suspect]
     Dosage: 40 MG, 1X/DAY
     Route: 048
     Dates: end: 20131125
  2. ALDACTONE [Suspect]
     Dosage: 25 MG, 1X/DAY
     Route: 048
     Dates: end: 20131125
  3. ATACAND [Suspect]
     Dosage: 16 MG, 1X/DAY
     Route: 048
  4. LASILIX [Suspect]
     Dosage: 40 MG, 1X/DAY
     Route: 048
  5. LASILIX [Suspect]
     Dosage: 60 MG, 1X/DAY
     Route: 048
  6. LASILIX [Suspect]
     Dosage: 40 MG, 1X/DAY
     Route: 048
  7. LEVOTHYROX [Concomitant]
     Dosage: UNK
  8. PREVISCAN [Concomitant]
     Dosage: UNK
  9. GAVISCON /OLD FORM/ [Concomitant]
     Dosage: UNK
  10. STILNOX [Concomitant]
     Dosage: UNK

REACTIONS (5)
  - Asthma [Unknown]
  - Bronchitis [Unknown]
  - Cardiac failure [Unknown]
  - Hyponatraemia [Recovered/Resolved]
  - Renal failure acute [Recovering/Resolving]
